FAERS Safety Report 13372188 (Version 2)
Quarter: 2017Q2

REPORT INFORMATION
  Report Type: Spontaneous
  Country: CO (occurrence: CO)
  Receive Date: 20170327
  Receipt Date: 20170428
  Transmission Date: 20170830
  Serious: Yes (Other)
  Sender: FDA-Public Use
  Company Number: CO-AMGEN-COLSP2017045884

PATIENT
  Age: 90 Year
  Sex: Female

DRUGS (1)
  1. ENBREL [Suspect]
     Active Substance: ETANERCEPT
     Indication: PSORIASIS
     Dosage: 50 MG, WEEKLY
     Route: 058
     Dates: start: 2011

REACTIONS (7)
  - Basal cell carcinoma [Unknown]
  - Actinic elastosis [Unknown]
  - Condition aggravated [Unknown]
  - Psoriasis [Unknown]
  - Blood triglycerides increased [Unknown]
  - Rash erythematous [Unknown]
  - Actinic keratosis [Unknown]
